FAERS Safety Report 7622428-9 (Version None)
Quarter: 2011Q3

REPORT INFORMATION
  Report Type: 
  Country: None (occurrence: None)
  Receive Date: 20110720
  Receipt Date: 20110627
  Transmission Date: 20111222
  Serious: Yes (Other)
  Sender: FDA-Public Use
  Company Number: US-MYLANLABS-2011S1010297

PATIENT
  Age: 10 Year
  Sex: Male

DRUGS (4)
  1. LAMOTRIGINE [Suspect]
     Indication: PARTIAL SEIZURES WITH SECONDARY GENERALISATION
     Route: 048
     Dates: start: 20110302
  2. LAMOTRIGINE [Suspect]
     Route: 048
     Dates: start: 20110302
  3. LAMOTRIGINE [Suspect]
     Indication: COMPLEX PARTIAL SEIZURES
     Route: 048
     Dates: start: 20110302
  4. LAMOTRIGINE [Suspect]
     Route: 048
     Dates: start: 20110302

REACTIONS (2)
  - CONVULSION [None]
  - ANGER [None]
